FAERS Safety Report 6196305-7 (Version None)
Quarter: 2009Q2

REPORT INFORMATION
  Report Type: 
  Country: None (occurrence: None)
  Receive Date: 20090520
  Receipt Date: 20090508
  Transmission Date: 20091009
  Serious: Yes (Other)
  Sender: FDA-Public Use
  Company Number: SG-PFIZER INC-2009212459

PATIENT
  Age: 54 Year

DRUGS (1)
  1. SULFASALAZINE [Suspect]

REACTIONS (4)
  - DIARRHOEA [None]
  - HYPOTENSION [None]
  - PYREXIA [None]
  - RASH MACULO-PAPULAR [None]
